FAERS Safety Report 13118288 (Version 1)
Quarter: 2017Q1

REPORT INFORMATION
  Report Type: Spontaneous
  Country: US (occurrence: US)
  Receive Date: 20170116
  Receipt Date: 20170116
  Transmission Date: 20170428
  Serious: No
  Sender: FDA-Public Use
  Company Number: US-GLAXOSMITHKLINE-US2017004470

PATIENT
  Age: 63 Year
  Sex: Female

DRUGS (1)
  1. TANZEUM [Suspect]
     Active Substance: ALBIGLUTIDE
     Indication: PRODUCT USED FOR UNKNOWN INDICATION
     Dosage: 30 MG, U
     Route: 042

REACTIONS (7)
  - Inappropriate schedule of drug administration [Unknown]
  - Circumstance or information capable of leading to device use error [Unknown]
  - Intentional product use issue [Unknown]
  - Pain [Recovered/Resolved]
  - Dizziness [Unknown]
  - Device use error [Unknown]
  - Product preparation error [Unknown]

NARRATIVE: CASE EVENT DATE: 20170111
